FAERS Safety Report 4380268-0 (Version None)
Quarter: 2004Q2

REPORT INFORMATION
  Report Type: 
  Country: None (occurrence: None)
  Receive Date: 20040618
  Receipt Date: 20040607
  Transmission Date: 20050107
  Serious: Yes (Death)
  Sender: FDA-Public Use
  Company Number: PHFR2004GB02453

PATIENT
  Age: 77 Year
  Sex: Male
  Weight: 79 kg

DRUGS (6)
  1. DICLOFENAC SODIUM [Suspect]
     Dosage: 50 MG, TID
     Route: 048
     Dates: start: 20040403, end: 20040405
  2. DALTEPARIN SODIUM [Concomitant]
     Indication: THROMBOSIS PROPHYLAXIS
     Dosage: 2500 IU, QD
     Route: 058
     Dates: start: 20040330
  3. NITRAZEPAM [Concomitant]
     Indication: SEDATION
     Dosage: 50 MG, QD
     Route: 048
  4. CO-CODAMOL [Concomitant]
     Indication: POSTOPERATIVE ANALGESIA
     Dosage: 1G/60MG
     Route: 048
     Dates: start: 20040401, end: 20040504
  5. CEFUROXIME [Concomitant]
     Dosage: 750 MG, TID
     Route: 042
     Dates: start: 20040331, end: 20040403
  6. METRONIDAZOLE [Concomitant]
     Dosage: 500 MG, TID
     Route: 042
     Dates: start: 20040331, end: 20040403

REACTIONS (6)
  - ABDOMINAL PAIN LOWER [None]
  - GASTROINTESTINAL PERFORATION [None]
  - MULTI-ORGAN FAILURE [None]
  - PERITONITIS [None]
  - SEPSIS [None]
  - SUBDIAPHRAGMATIC ABSCESS [None]
